FAERS Safety Report 25840266 (Version 1)
Quarter: 2025Q3

REPORT INFORMATION
  Report Type: Spontaneous
  Country: CN (occurrence: CN)
  Receive Date: 20250924
  Receipt Date: 20250924
  Transmission Date: 20251021
  Serious: Yes (Other)
  Sender: ROCHE
  Company Number: CN-ROCHE-10000392557

PATIENT
  Age: 43 Year
  Sex: Female

DRUGS (3)
  1. PERTUZUMAB\TRASTUZUMAB [Suspect]
     Active Substance: PERTUZUMAB\TRASTUZUMAB
     Indication: Breast cancer
     Route: 058
     Dates: start: 20250825, end: 20250825
  2. DOCETAXEL [Suspect]
     Active Substance: DOCETAXEL
     Indication: Breast cancer
     Route: 042
     Dates: start: 20250825, end: 20250825
  3. SODIUM CHLORIDE [Concomitant]
     Active Substance: SODIUM CHLORIDE
     Indication: Breast cancer
     Route: 042
     Dates: start: 20250825, end: 20250825

REACTIONS (1)
  - Myelosuppression [Recovering/Resolving]

NARRATIVE: CASE EVENT DATE: 20250901
